FAERS Safety Report 5792222-2 (Version None)
Quarter: 2008Q2

REPORT INFORMATION
  Report Type: 
  Country: None (occurrence: None)
  Receive Date: 20080626
  Receipt Date: 20080414
  Transmission Date: 20081010
  Serious: No
  Sender: FDA-Public Use
  Company Number: US-ASTRAZENECA-2008UW07564

PATIENT
  Age: 55 Year
  Sex: Female
  Weight: 57.6 kg

DRUGS (3)
  1. PULMICORT RESPULES [Suspect]
     Indication: CHRONIC SINUSITIS
     Route: 055
  2. CIPRO [Concomitant]
  3. CEFEPIME HYDROCHLORIDE [Concomitant]

REACTIONS (1)
  - BURNING SENSATION [None]
